FAERS Safety Report 10659826 (Version 1)
Quarter: 2014Q4

REPORT INFORMATION
  Report Type: Spontaneous
  Country: US (occurrence: US)
  Receive Date: 20141217
  Receipt Date: 20141217
  Transmission Date: 20150529
  Serious: No
  Sender: FDA-Public Use
  Company Number: US-SA-2014SA006215

PATIENT
  Age: 36 Year
  Sex: Female
  Weight: 72.12 kg

DRUGS (3)
  1. L-THYROXINE [Concomitant]
     Active Substance: LEVOTHYROXINE
     Dates: start: 20131220
  2. CALCITRIOL. [Concomitant]
     Active Substance: CALCITRIOL
     Indication: ILL-DEFINED DISORDER
     Dates: start: 20131220, end: 20140130
  3. THYROGEN [Suspect]
     Active Substance: THYROTROPIN ALFA
     Indication: THERAPEUTIC PROCEDURE
     Route: 065
     Dates: start: 20140113

REACTIONS (2)
  - Influenza like illness [Recovered/Resolved]
  - Myalgia [Recovered/Resolved]

NARRATIVE: CASE EVENT DATE: 20140113
